FAERS Safety Report 12081467 (Version 1)
Quarter: 2016Q1

REPORT INFORMATION
  Report Type: Spontaneous
  Country: US (occurrence: US)
  Receive Date: 20160216
  Receipt Date: 20160216
  Transmission Date: 20160526
  Serious: No
  Sender: FDA-Public Use
  Company Number: US-BAUSCH-BL-2015-017870

PATIENT
  Sex: Female

DRUGS (1)
  1. DILTIAZEM HCL ER CAPSULES [Suspect]
     Active Substance: DILTIAZEM HYDROCHLORIDE
     Indication: PRODUCT USED FOR UNKNOWN INDICATION
     Dates: start: 20150629, end: 201507

REACTIONS (4)
  - Arrhythmia [Unknown]
  - Hypertension [Unknown]
  - Product size issue [Unknown]
  - Joint swelling [Unknown]
